FAERS Safety Report 9029441 (Version 1)
Quarter: 2013Q1

REPORT INFORMATION
  Report Type: Spontaneous
  Country: US (occurrence: US)
  Receive Date: 20130125
  Receipt Date: 20130125
  Transmission Date: 20140127
  Serious: Yes (Hospitalization)
  Sender: FDA-Public Use
  Company Number: US-BAYER-2013-008269

PATIENT
  Age: 17 Year
  Sex: 0
  Weight: 54.42 kg

DRUGS (7)
  1. YASMIN [Suspect]
  2. IMODIUM [Concomitant]
  3. BELLADONNA AND PHENOBARBITONE [Concomitant]
  4. SULFAMETHOXAZOLE/TRIMETHOPRIM [Concomitant]
  5. SEPTRA DS [Concomitant]
  6. VICODIN [Concomitant]
  7. PERCOCET [Concomitant]

REACTIONS (1)
  - Pulmonary embolism [None]
